FAERS Safety Report 19720204 (Version 4)
Quarter: 2022Q2

REPORT INFORMATION
  Report Type: Spontaneous
  Country: US (occurrence: US)
  Receive Date: 20210819
  Receipt Date: 20220418
  Transmission Date: 20220720
  Serious: No
  Sender: FDA-Public Use
  Company Number: US-NOVARTISTESTPH-NVSC2021US182056

PATIENT
  Sex: Female

DRUGS (1)
  1. VOTRIENT [Suspect]
     Active Substance: PAZOPANIB HYDROCHLORIDE
     Indication: Neoplasm
     Dosage: 800 MG, QD
     Route: 048
     Dates: start: 20190730

REACTIONS (3)
  - Joint swelling [Unknown]
  - Abdominal pain [Unknown]
  - Off label use [Unknown]
